FAERS Safety Report 6541186-2 (Version None)
Quarter: 2010Q1

REPORT INFORMATION
  Report Type: 
  Country: None (occurrence: None)
  Receive Date: 20100118
  Receipt Date: 20100112
  Transmission Date: 20100710
  Serious: Yes (Hospitalization)
  Sender: FDA-Public Use
  Company Number: B0624758A

PATIENT
  Sex: Male

DRUGS (3)
  1. PAROXETINE HYDROCHLORIDE [Suspect]
     Route: 048
     Dates: start: 20021101
  2. CHLORDIAZEPOXIDE [Concomitant]
     Route: 065
  3. PROMETHAZINE [Concomitant]
     Route: 065

REACTIONS (1)
  - INTENTIONAL SELF-INJURY [None]
